FAERS Safety Report 7571564-4 (Version None)
Quarter: 2011Q2

REPORT INFORMATION
  Report Type: 
  Country: None (occurrence: None)
  Receive Date: 20110624
  Receipt Date: 20110610
  Transmission Date: 20111010
  Serious: Yes (Other)
  Sender: FDA-Public Use
  Company Number: BE-WATSON-2011-08779

PATIENT
  Age: 50 Year
  Sex: Female

DRUGS (1)
  1. LAMOTRIGINE [Suspect]
     Indication: SUICIDE ATTEMPT
     Dosage: 3.5 G

REACTIONS (4)
  - OVERDOSE [None]
  - BUNDLE BRANCH BLOCK LEFT [None]
  - ELECTROCARDIOGRAM CHANGE [None]
  - ELECTROCARDIOGRAM QRS COMPLEX PROLONGED [None]
